FAERS Safety Report 20134394 (Version 1)
Quarter: 2021Q4

REPORT INFORMATION
  Report Type: Spontaneous
  Country: US (occurrence: US)
  Receive Date: 20211201
  Receipt Date: 20211201
  Transmission Date: 20220303
  Serious: Yes (Other)
  Sender: FDA-Public Use
  Company Number: US-ABBVIE-21K-163-4180378-00

PATIENT
  Sex: Male

DRUGS (1)
  1. LUPRON [Suspect]
     Active Substance: LEUPROLIDE ACETATE
     Indication: Prostatic specific antigen
     Route: 065
     Dates: start: 201806

REACTIONS (4)
  - Metastatic neoplasm [Unknown]
  - Prostatic specific antigen [Unknown]
  - Metabolic disorder [Unknown]
  - Pulmonary mass [Unknown]
